FAERS Safety Report 15546171 (Version 1)
Quarter: 2018Q4

REPORT INFORMATION
  Report Type: Spontaneous
  Country: US (occurrence: US)
  Receive Date: 20181024
  Receipt Date: 20181024
  Transmission Date: 20190205
  Serious: Yes (Hospitalization)
  Sender: FDA-Public Use
  Company Number: US-TEVA-2018-US-938876

PATIENT
  Age: 58 Year
  Sex: Female

DRUGS (1)
  1. GLIMEPIRIDE. [Suspect]
     Active Substance: GLIMEPIRIDE
     Route: 065

REACTIONS (4)
  - Loss of consciousness [Unknown]
  - Hypoglycaemia [Unknown]
  - Seizure like phenomena [Unknown]
  - Accidental exposure to product [Unknown]
